FAERS Safety Report 15825623 (Version 1)
Quarter: 2019Q1

REPORT INFORMATION
  Report Type: Spontaneous
  Country: US (occurrence: US)
  Receive Date: 20190111
  Receipt Date: 20190111
  Transmission Date: 20190417
  Serious: Yes (Hospitalization)
  Sender: FDA-Public Use
  Company Number: None

PATIENT
  Age: 90 Year
  Sex: Female
  Weight: 50 kg

DRUGS (2)
  1. GLUTATHIONE, 200 MG/ML [Suspect]
     Active Substance: GLUTATHIONE
     Route: 040
     Dates: start: 20190109, end: 20190109
  2. IV VITAMINS [Concomitant]

REACTIONS (4)
  - Hypotension [None]
  - Toxicity to various agents [None]
  - Dyspnoea [None]
  - Sepsis [None]

NARRATIVE: CASE EVENT DATE: 20190109
